FAERS Safety Report 4690818-2 (Version None)
Quarter: 2005Q2

REPORT INFORMATION
  Report Type: 
  Country: None (occurrence: None)
  Receive Date: 20050608
  Receipt Date: 20050524
  Transmission Date: 20051028
  Serious: Yes (Other)
  Sender: FDA-Public Use
  Company Number: 200511442BBE

PATIENT
  Sex: Male

DRUGS (1)
  1. HYPERTET S/D [Suspect]
     Dosage: INTRAMUSCULAR
     Route: 030

REACTIONS (1)
  - NERVOUS SYSTEM DISORDER [None]
